FAERS Safety Report 22942846 (Version 3)
Quarter: 2024Q3

REPORT INFORMATION
  Report Type: Report from Study
  Country: US (occurrence: US)
  Receive Date: 20230914
  Receipt Date: 20240829
  Transmission Date: 20241016
  Serious: Yes (Hospitalization, Other)
  Sender: BIOGEN
  Company Number: US-BIOGEN-2023BI01225206

PATIENT
  Age: 49 Year
  Sex: Female

DRUGS (2)
  1. VUMERITY [Suspect]
     Active Substance: DIROXIMEL FUMARATE
     Indication: Multiple sclerosis
     Dosage: VUMERITY 231 MG CAP TAKE 2 CAPSULES BY MOUTH TWICE A DAY
     Route: 050
     Dates: start: 20230821
  2. SOLU-MEDROL [Concomitant]
     Active Substance: METHYLPREDNISOLONE SODIUM SUCCINATE
     Indication: Multiple sclerosis
     Route: 050

REACTIONS (10)
  - Optic neuritis [Unknown]
  - Blindness [Unknown]
  - Psychotic disorder [Unknown]
  - Clumsiness [Unknown]
  - Foreign body in throat [Unknown]
  - Depression [Unknown]
  - Hormone level abnormal [Unknown]
  - Dyspepsia [Not Recovered/Not Resolved]
  - Flushing [Unknown]
  - Nausea [Unknown]

NARRATIVE: CASE EVENT DATE: 20240501
